FAERS Safety Report 11098399 (Version 2)
Quarter: 2015Q2

REPORT INFORMATION
  Report Type: Spontaneous
  Country: US (occurrence: US)
  Receive Date: 20150507
  Receipt Date: 20150619
  Transmission Date: 20150821
  Serious: Yes (Hospitalization)
  Sender: FDA-Public Use
  Company Number: US-ELI_LILLY_AND_COMPANY-US201504009770

PATIENT
  Sex: Male
  Weight: 205.1 kg

DRUGS (14)
  1. NIACIN. [Concomitant]
     Active Substance: NIACIN
  2. D-MANNOSE [Concomitant]
  3. VITAMIN B12 [Concomitant]
     Active Substance: CYANOCOBALAMIN
  4. DOXAZOSIN [Suspect]
     Active Substance: DOXAZOSIN\DOXAZOSIN MESYLATE
     Indication: PRODUCT USED FOR UNKNOWN INDICATION
     Route: 065
  5. ZINC [Concomitant]
     Active Substance: ZINC\ZINC CHLORIDE
  6. COENZYME Q10 [Concomitant]
     Active Substance: UBIDECARENONE
  7. CYMBALTA [Suspect]
     Active Substance: DULOXETINE HYDROCHLORIDE
     Indication: PRODUCT USED FOR UNKNOWN INDICATION
     Dosage: UNK
     Route: 065
  8. CAROTENE [Concomitant]
  9. VITAMIN B12 [Concomitant]
     Active Substance: CYANOCOBALAMIN
  10. IMBRUVICA [Suspect]
     Active Substance: IBRUTINIB
     Indication: WALDENSTROM^S MACROGLOBULINAEMIA
     Dosage: 420 MG, QD
     Route: 065
     Dates: start: 20150318
  11. VITAMIN C [Concomitant]
     Active Substance: ASCORBIC ACID
  12. MAGNESIUM GLYCINATE [Concomitant]
     Active Substance: MAGNESIUM GLYCINATE
  13. VITAMIN D3 [Concomitant]
     Active Substance: CHOLECALCIFEROL
  14. ALPHA LIPOIC ACID [Concomitant]
     Active Substance: .ALPHA.-LIPOIC ACID

REACTIONS (2)
  - Syncope [Recovered/Resolved]
  - Hypertension [Unknown]
